FAERS Safety Report 24762034 (Version 2)
Quarter: 2025Q1

REPORT INFORMATION
  Report Type: Spontaneous
  Country: US (occurrence: US)
  Receive Date: 20241221
  Receipt Date: 20250312
  Transmission Date: 20250409
  Serious: No
  Sender: GRANULES PHARMACEUTICALS INC
  Company Number: US-GRANULES-US-2024GRASPO00645

PATIENT
  Age: 56 Year
  Sex: Male

DRUGS (2)
  1. GUAIFENESIN [Suspect]
     Active Substance: GUAIFENESIN
     Indication: Product used for unknown indication
     Route: 065
  2. GUAIFENESIN [Suspect]
     Active Substance: GUAIFENESIN

REACTIONS (1)
  - Drug ineffective [Unknown]
